FAERS Safety Report 6418054-X (Version None)
Quarter: 2009Q4

REPORT INFORMATION
  Report Type: 
  Country: None (occurrence: None)
  Receive Date: 20091026
  Receipt Date: 20091013
  Transmission Date: 20100525
  Serious: Yes (Disabling, Other)
  Sender: FDA-Public Use
  Company Number: ADR38892009

PATIENT
  Age: 71 Year
  Sex: Male

DRUGS (5)
  1. SIMVASTATIN [Suspect]
     Indication: HYPERCHOLESTEROLAEMIA
     Dosage: 10 MG, ORAL
     Route: 048
     Dates: start: 20020910, end: 20030121
  2. SIMVASTATIN [Suspect]
     Indication: HYPERCHOLESTEROLAEMIA
     Dosage: 10 MG, ORAL
     Route: 048
     Dates: start: 20031212, end: 20060223
  3. ACETAMINOPHEN ASPIRIN (75MG) [Concomitant]
  4. DOTHIEPIN HYDROCHLORIDE [Concomitant]
  5. PROPOXYPHENE HYDROCHLORIDE [Concomitant]

REACTIONS (2)
  - ERECTILE DYSFUNCTION [None]
  - TRANSIENT GLOBAL AMNESIA [None]
